FAERS Safety Report 7321873-9 (Version None)
Quarter: 2011Q1

REPORT INFORMATION
  Report Type: 
  Country: None (occurrence: None)
  Receive Date: 20110228
  Receipt Date: 20110214
  Transmission Date: 20110831
  Serious: Yes (Death)
  Sender: FDA-Public Use
  Company Number: US-CELGENEUS-163-21880-11011812

PATIENT
  Sex: Male

DRUGS (5)
  1. METOPROLOL [Concomitant]
     Route: 065
  2. REVLIMID [Suspect]
     Indication: MULTIPLE MYELOMA
     Route: 048
     Dates: start: 20100727, end: 20100811
  3. VICODIN [Concomitant]
     Route: 065
  4. CALCIUM WITH VITAMIN D [Concomitant]
     Route: 065
  5. LEVOXYL [Concomitant]
     Route: 065

REACTIONS (1)
  - MULTIPLE MYELOMA [None]
